FAERS Safety Report 4620737-9 (Version None)
Quarter: 2005Q2

REPORT INFORMATION
  Report Type: 
  Country: None (occurrence: None)
  Receive Date: 20050321
  Receipt Date: 20040630
  Transmission Date: 20051028
  Serious: Yes (Other)
  Sender: FDA-Public Use
  Company Number: 2004-06-2309

PATIENT
  Age: 48 Year
  Sex: Female
  Weight: 110.6777 kg

DRUGS (11)
  1. PEG-INTRON [Suspect]
     Indication: HEPATITIS C
     Dosage: 150 MCG QWK SUBCUTANEOUS
     Route: 058
     Dates: start: 20040521, end: 20040616
  2. REBETOL [Suspect]
     Indication: HEPATITIS C
     Dosage: 1400 MG QD ORAL
     Route: 048
     Dates: start: 20040521, end: 20040616
  3. ALTACE [Concomitant]
  4. NEXIUM [Concomitant]
  5. XANAX [Concomitant]
  6. PERCOCET [Concomitant]
  7. INDERAL LA [Concomitant]
  8. VERPAMIL [Concomitant]
  9. LASIX [Concomitant]
  10. WELLBUTRIN [Concomitant]
  11. TRAZODONE [Concomitant]

REACTIONS (1)
  - DEAFNESS [None]
